FAERS Safety Report 7118977-2 (Version None)
Quarter: 2010Q4

REPORT INFORMATION
  Report Type: 
  Country: None (occurrence: None)
  Receive Date: 20101123
  Receipt Date: 20101116
  Transmission Date: 20110411
  Serious: Yes (Other)
  Sender: FDA-Public Use
  Company Number: A0761381A

PATIENT
  Age: 65 Year
  Sex: Male
  Weight: 79.5 kg

DRUGS (4)
  1. AVANDIA [Suspect]
     Dosage: 4MG PER DAY
     Route: 048
     Dates: start: 20031002, end: 20070523
  2. BEXTRA [Concomitant]
  3. LOTREL [Concomitant]
  4. CLONAZEPAM [Concomitant]

REACTIONS (6)
  - AORTIC VALVE INCOMPETENCE [None]
  - CARDIOMEGALY [None]
  - CEREBROVASCULAR ACCIDENT [None]
  - DIASTOLIC DYSFUNCTION [None]
  - TRANSIENT ISCHAEMIC ATTACK [None]
  - TRICUSPID VALVE INCOMPETENCE [None]
